FAERS Safety Report 6704935-6 (Version None)
Quarter: 2010Q2

REPORT INFORMATION
  Report Type: 
  Country: None (occurrence: None)
  Receive Date: 20100430
  Receipt Date: 20090227
  Transmission Date: 20101027
  Serious: No
  Sender: FDA-Public Use
  Company Number: US-ASTRAZENECA-2009UW05430

PATIENT
  Age: 65 Year
  Sex: Male
  Weight: 79.4 kg

DRUGS (13)
  1. NEXIUM [Suspect]
     Route: 048
  2. ATIVAN [Concomitant]
     Indication: ANTIDEPRESSANT THERAPY
  3. CALCIUM [Concomitant]
     Indication: SUPPLEMENTATION THERAPY
  4. GLYBURIDE [Concomitant]
     Indication: DIABETES MELLITUS
  5. LOTENSIN [Concomitant]
     Indication: CARDIAC DISORDER
  6. MEDIPROAL [Concomitant]
     Indication: CARDIAC DISORDER
  7. METFORMIN [Concomitant]
     Indication: DIABETES MELLITUS
  8. MULTIVITAMIN [Concomitant]
     Indication: EYE DISORDER
  9. PLAVIX [Concomitant]
     Indication: CARDIAC DISORDER
  10. PRAVACHOL [Concomitant]
     Indication: BLOOD CHOLESTEROL
  11. FISH OIL [Concomitant]
     Indication: BLOOD CHOLESTEROL
  12. FISH OIL [Concomitant]
     Indication: CARDIAC DISORDER
  13. VITAMIN D [Concomitant]
     Indication: OSTEOPOROSIS

REACTIONS (1)
  - THROAT IRRITATION [None]
